FAERS Safety Report 6601892-8 (Version None)
Quarter: 2010Q1

REPORT INFORMATION
  Report Type: 
  Country: None (occurrence: None)
  Receive Date: 20100225
  Receipt Date: 20100215
  Transmission Date: 20100710
  Serious: Yes (Death)
  Sender: FDA-Public Use
  Company Number: US-JNJFOC-20100208280

PATIENT
  Age: 46 Year
  Sex: Male
  Weight: 94.35 kg

DRUGS (8)
  1. DURAGESIC-100 [Suspect]
     Indication: COMPLETED SUICIDE
     Route: 062
  2. ACETAMINOPHEN [Concomitant]
  3. CITALOPRAM [Concomitant]
  4. OXYCODONE HCL [Concomitant]
  5. ALPRAZOLAM [Concomitant]
  6. BUPROPION HCL [Concomitant]
  7. TRAZODONE [Concomitant]
  8. OPIATES [Concomitant]

REACTIONS (2)
  - NARCOTIC INTOXICATION [None]
  - SUICIDAL IDEATION [None]
